FAERS Safety Report 8232324-4 (Version None)
Quarter: 2012Q1

REPORT INFORMATION
  Report Type: 
  Country: None (occurrence: None)
  Receive Date: 20120323
  Receipt Date: 20120315
  Transmission Date: 20120608
  Serious: Yes (Other)
  Sender: FDA-Public Use
  Company Number: US-GLAXOSMITHKLINE-A0889305A

PATIENT
  Sex: Male
  Weight: 111.8 kg

DRUGS (2)
  1. AVANDAMET [Suspect]
     Indication: DIABETES MELLITUS
     Route: 048
  2. AVANDIA [Suspect]
     Indication: DIABETES MELLITUS
     Dosage: 8MG TWICE PER DAY
     Route: 048
     Dates: start: 20060701, end: 20070301

REACTIONS (10)
  - CARDIAC FAILURE CONGESTIVE [None]
  - MYOCARDIAL INFARCTION [None]
  - INCORRECT DOSE ADMINISTERED [None]
  - HEMIANOPIA [None]
  - CEREBROVASCULAR ACCIDENT [None]
  - CARDIOVASCULAR DISORDER [None]
  - SUPRAVENTRICULAR EXTRASYSTOLES [None]
  - WRONG TECHNIQUE IN DRUG USAGE PROCESS [None]
  - ARRHYTHMIA SUPRAVENTRICULAR [None]
  - DIARRHOEA [None]
